FAERS Safety Report 9431255 (Version 2)
Quarter: 2013Q3

REPORT INFORMATION
  Report Type: Spontaneous
  Country: GB (occurrence: GB)
  Receive Date: 20130730
  Receipt Date: 20130905
  Transmission Date: 20140515
  Serious: Yes (Life-Threatening, Other)
  Sender: FDA-Public Use
  Company Number: GB-B.I. PHARMACEUTICALS,INC./RIDGEFIELD-2013-UK-01476UK

PATIENT
  Age: 57 Year
  Sex: Male
  Weight: 87 kg

DRUGS (7)
  1. MIRAPEXIN [Suspect]
     Indication: RESTLESS LEGS SYNDROME
     Dosage: 250 MCG
     Route: 048
     Dates: start: 20120103, end: 20130619
  2. ALLOPURINOL [Concomitant]
     Dates: start: 201302
  3. CLARITHROMYCIN [Concomitant]
     Dates: start: 201301
  4. DOXYCYCLINE [Concomitant]
     Dates: start: 20130307
  5. NAPROXEN [Concomitant]
     Dates: start: 201302
  6. OMEPRAZOLE [Concomitant]
     Dates: start: 201302
  7. PRAMIPEXOLE [Concomitant]
     Dates: start: 2011

REACTIONS (6)
  - Drug-induced liver injury [Not Recovered/Not Resolved]
  - Chronic hepatitis [Unknown]
  - Jaundice [Not Recovered/Not Resolved]
  - Lethargy [Not Recovered/Not Resolved]
  - Liver function test abnormal [Not Recovered/Not Resolved]
  - Chromaturia [Unknown]
